FAERS Safety Report 23471979 (Version 2)
Quarter: 2024Q1

REPORT INFORMATION
  Report Type: Spontaneous
  Country: CN (occurrence: CN)
  Receive Date: 20240202
  Receipt Date: 20240207
  Transmission Date: 20240410
  Serious: Yes (Life-Threatening, Hospitalization, Other)
  Sender: FDA-Public Use
  Company Number: CN-MLMSERVICE-20240124-4792024-1

PATIENT
  Age: 51 Year
  Sex: Male

DRUGS (3)
  1. METHYLPREDNISOLONE [Suspect]
     Active Substance: METHYLPREDNISOLONE
     Indication: Immunosuppressant drug therapy
     Dosage: UNK
     Dates: start: 202112, end: 202112
  2. TACROLIMUS [Suspect]
     Active Substance: TACROLIMUS
     Indication: Immunosuppressant drug therapy
     Dosage: UNK
     Dates: start: 202112, end: 202112
  3. TACROLIMUS [Suspect]
     Active Substance: TACROLIMUS
     Dosage: 0.5 MG, 2X/DAY
     Dates: start: 202112, end: 202112

REACTIONS (5)
  - Post transplant lymphoproliferative disorder [Recovering/Resolving]
  - Spleen disorder [Recovering/Resolving]
  - Hepatic mass [Recovering/Resolving]
  - Abdominal wall mass [Recovering/Resolving]
  - Retroperitoneal mass [Recovering/Resolving]

NARRATIVE: CASE EVENT DATE: 20211201
